FAERS Safety Report 9264959 (Version 1)
Quarter: 2013Q2

REPORT INFORMATION
  Report Type: Spontaneous
  Country: US (occurrence: None)
  Receive Date: 20130430
  Receipt Date: 20130430
  Transmission Date: 20140414
  Serious: Yes (Other)
  Sender: FDA-Public Use
  Company Number: None

PATIENT
  Age: 31 Year
  Sex: Female
  Weight: 66.23 kg

DRUGS (1)
  1. ORTHO TRI CYCLEN [Suspect]
     Dates: start: 201205

REACTIONS (3)
  - Rash [None]
  - Product substitution issue [None]
  - Product quality issue [None]
